FAERS Safety Report 7935288-3 (Version None)
Quarter: 2011Q4

REPORT INFORMATION
  Report Type: 
  Country: None (occurrence: None)
  Receive Date: 20111122
  Receipt Date: 20111110
  Transmission Date: 20120403
  Serious: Yes (Other)
  Sender: FDA-Public Use
  Company Number: FI-ELI_LILLY_AND_COMPANY-FI201111000911

PATIENT
  Sex: Female

DRUGS (7)
  1. PREDNISOLONE [Concomitant]
     Indication: TEMPORAL ARTERITIS
     Dosage: 5 MG, QD
     Route: 048
     Dates: start: 20080601
  2. NALTREXONE HYDROCHLORIDE [Concomitant]
     Indication: TEMPORAL ARTERITIS
     Dosage: 10 MG, QD
     Route: 048
     Dates: start: 20090901
  3. FORTEO [Suspect]
     Indication: OSTEOPOROSIS
     Dosage: 20 UG, QD
     Route: 058
     Dates: start: 20111006, end: 20111024
  4. RAMIPRIL [Concomitant]
     Indication: BLOOD PRESSURE ABNORMAL
     Dosage: 10 MG, QD
     Route: 048
     Dates: start: 20090401
  5. KALCIPOS-D [Concomitant]
     Indication: OSTEOPOROSIS
     Dosage: 1 DF, BID
     Route: 048
     Dates: start: 20080601
  6. EMCONCOR CHF [Concomitant]
     Indication: BLOOD PRESSURE ABNORMAL
     Dosage: 2.5 MG, QD
     Route: 048
     Dates: start: 20110501
  7. FOLIC ACID [Concomitant]
     Indication: PROPHYLAXIS
     Dosage: 5 MG, QD
     Route: 048
     Dates: start: 20090901

REACTIONS (3)
  - BLOOD PRESSURE INCREASED [None]
  - DIZZINESS [None]
  - NAUSEA [None]
